FAERS Safety Report 8021138-6 (Version None)
Quarter: 2012Q1

REPORT INFORMATION
  Report Type: 
  Country: None (occurrence: None)
  Receive Date: 20120104
  Receipt Date: 20120102
  Transmission Date: 20120608
  Serious: Yes (Death)
  Sender: FDA-Public Use
  Company Number: US-PFIZER INC-2011295912

PATIENT
  Sex: Female

DRUGS (2)
  1. XALKORI [Suspect]
     Indication: BRONCHIAL CARCINOMA
     Dosage: 200 MG, 2X/DAY
     Route: 048
     Dates: start: 20111021
  2. XALKORI [Suspect]
     Indication: LUNG NEOPLASM MALIGNANT

REACTIONS (3)
  - DISEASE PROGRESSION [None]
  - BRONCHIAL CARCINOMA [None]
  - LUNG NEOPLASM MALIGNANT [None]
